FAERS Safety Report 13263440 (Version 1)
Quarter: 2017Q1

REPORT INFORMATION
  Report Type: Report from Study
  Country: None (occurrence: US)
  Receive Date: 20170223
  Receipt Date: 20170223
  Transmission Date: 20170428
  Serious: Yes (Other)
  Sender: FDA-Public Use
  Company Number: US-ABBVIE-17K-163-1880257-00

PATIENT
  Age: 27 Year
  Sex: Male

DRUGS (3)
  1. HUMIRA [Suspect]
     Active Substance: ADALIMUMAB
     Indication: CROHN^S DISEASE
     Route: 058
     Dates: start: 2015, end: 201609
  2. METRONIDAZOLE. [Suspect]
     Active Substance: METRONIDAZOLE
     Indication: PERIRECTAL ABSCESS
     Route: 065
     Dates: start: 201612
  3. HUMIRA [Suspect]
     Active Substance: ADALIMUMAB
     Route: 058
     Dates: start: 2016

REACTIONS (8)
  - Anal fistula [Recovered/Resolved]
  - Perirectal abscess [Recovered/Resolved]
  - Diarrhoea [Recovering/Resolving]
  - Night sweats [Not Recovered/Not Resolved]
  - Pyrexia [Not Recovered/Not Resolved]
  - Perirectal abscess [Not Recovered/Not Resolved]
  - Chromaturia [Recovering/Resolving]
  - Inappropriate schedule of drug administration [Not Recovered/Not Resolved]

NARRATIVE: CASE EVENT DATE: 201512
